FAERS Safety Report 9233934 (Version 1)
Quarter: 2013Q2

REPORT INFORMATION
  Report Type: Other
  Country: CA (occurrence: CA)
  Receive Date: 20130416
  Receipt Date: 20130416
  Transmission Date: 20140414
  Serious: Yes (Hospitalization)
  Sender: FDA-Public Use
  Company Number: CA-NAPPMUNDI-GBR-2013-0013667

PATIENT
  Age: 80 Year
  Sex: Female

DRUGS (3)
  1. MORPHINE SULFATE [Suspect]
     Indication: PAIN
     Dosage: 5 MG, UNK
     Route: 065
  2. HYDROMORPHONE HCL [Suspect]
     Indication: BREAKTHROUGH PAIN
     Route: 065
  3. HYDROMORPHONE HCL [Suspect]
     Indication: PAIN
     Route: 065

REACTIONS (1)
  - Colonic pseudo-obstruction [Unknown]
